FAERS Safety Report 9227301 (Version 1)
Quarter: 2013Q1

REPORT INFORMATION
  Report Type: Spontaneous
  Country: US (occurrence: None)
  Receive Date: 20121002
  Receipt Date: 20121002
  Transmission Date: 20140127
  Serious: No
  Sender: FDA-Public Use
  Company Number: M-12-001

PATIENT
  Sex: Female

DRUGS (3)
  1. LEVOTHYROXINE SODIUM [Suspect]
     Dosage: ORAL (047)
     Route: 048
  2. CHANTIX (VARENICILLINE TARTRATE) [Concomitant]
  3. PHONEGRAN [Concomitant]

REACTIONS (1)
  - Nausea [None]
